FAERS Safety Report 6543199-3 (Version None)
Quarter: 2010Q1

REPORT INFORMATION
  Report Type: 
  Country: None (occurrence: None)
  Receive Date: 20100120
  Receipt Date: 20100115
  Transmission Date: 20100710
  Serious: Yes (Life-Threatening, Hospitalization)
  Sender: FDA-Public Use
  Company Number: FR-BRISTOL-MYERS SQUIBB COMPANY-14080196

PATIENT
  Age: 57 Year
  Sex: Male

DRUGS (4)
  1. ENDOXAN [Suspect]
     Indication: MULTIPLE SCLEROSIS
     Route: 042
     Dates: start: 20070301, end: 20071115
  2. MANTADIX [Suspect]
     Indication: MULTIPLE SCLEROSIS
     Route: 048
     Dates: start: 20071101, end: 20071212
  3. DANTRIUM [Concomitant]
  4. TAMSULOSIN HCL [Concomitant]

REACTIONS (4)
  - BLOOD PRESSURE DECREASED [None]
  - BRADYCARDIA [None]
  - COMA [None]
  - CONFUSIONAL STATE [None]
